FAERS Safety Report 24437493 (Version 2)
Quarter: 2025Q2

REPORT INFORMATION
  Report Type: Report from Study
  Country: GB (occurrence: GB)
  Receive Date: 20241015
  Receipt Date: 20250603
  Transmission Date: 20250717
  Serious: Yes (Other)
  Sender: CELLTRION
  Company Number: GB-CELLTRION INC.-2024GB023094

PATIENT

DRUGS (2)
  1. ADALIMUMAB-AATY [Suspect]
     Active Substance: ADALIMUMAB-AATY
     Indication: Colitis ulcerative
     Route: 058
     Dates: start: 202404
  2. ADALIMUMAB-AATY [Suspect]
     Active Substance: ADALIMUMAB-AATY
     Dosage: 40MG FOR INJECTION PENS - INJECT ONE PRE-FILLED PEN ON WEEK 4 AND THEN EVERY TWO WEEKS THEREAFTER
     Route: 058
     Dates: start: 202403, end: 202505

REACTIONS (2)
  - Thrombosis [Unknown]
  - Drug ineffective [Unknown]
